FAERS Safety Report 19911674 (Version 1)
Quarter: 2021Q4

REPORT INFORMATION
  Report Type: Spontaneous
  Country: CN (occurrence: CN)
  Receive Date: 20211004
  Receipt Date: 20211004
  Transmission Date: 20220303
  Serious: Yes (Life-Threatening, Hospitalization, Other)
  Sender: FDA-Public Use
  Company Number: CN-GLAXOSMITHKLINE-CN2021APC204947

PATIENT
  Age: 163 Month
  Sex: Female

DRUGS (2)
  1. LAMICTAL [Suspect]
     Active Substance: LAMOTRIGINE
     Indication: Epilepsy
     Dosage: 5MG DISPERSIBLE TABLETS AT 25 MG, BID
     Route: 048
     Dates: start: 20210630
  2. VALPROATE MAGNESIUM [Suspect]
     Active Substance: VALPROATE MAGNESIUM
     Indication: Epilepsy
     Dosage: 0.25 G, BID

REACTIONS (1)
  - Stevens-Johnson syndrome [Unknown]
